FAERS Safety Report 7479288-9 (Version None)
Quarter: 2011Q2

REPORT INFORMATION
  Report Type: 
  Country: None (occurrence: None)
  Receive Date: 20110513
  Receipt Date: 20110510
  Transmission Date: 20111010
  Serious: Yes (Hospitalization)
  Sender: FDA-Public Use
  Company Number: DE-PFIZER INC-2011100463

PATIENT
  Age: 75 Year
  Sex: Female

DRUGS (3)
  1. VENLAFAXINE [Suspect]
     Indication: DEPRESSION
     Dosage: 150 MG, UNK
     Dates: start: 20100101
  2. VENLAFAXINE [Suspect]
     Dosage: 75 MG, UNK
     Dates: start: 20110101
  3. VENLAFAXINE [Suspect]
     Dosage: 37.5 MG, UNK
     Dates: start: 20110101

REACTIONS (3)
  - URTICARIA [None]
  - BLISTER [None]
  - MENTAL DISORDER [None]
